FAERS Safety Report 7290155-6 (Version None)
Quarter: 2011Q1

REPORT INFORMATION
  Report Type: 
  Country: None (occurrence: None)
  Receive Date: 20110214
  Receipt Date: 20110201
  Transmission Date: 20110831
  Serious: Yes (Hospitalization)
  Sender: FDA-Public Use
  Company Number: PHHY2011US08483

PATIENT
  Sex: Female

DRUGS (4)
  1. SANDOSTATIN LAR [Suspect]
     Dosage: 20 MG, UNK
  2. AFINITOR [Suspect]
     Indication: NEOPLASM MALIGNANT
     Dosage: 15 MG, QD
     Route: 048
     Dates: start: 20101207, end: 20110127
  3. QUININE SULFATE [Concomitant]
     Dosage: 35 MG, UNK
  4. INSULIN HUMAN [Concomitant]

REACTIONS (3)
  - DYSPNOEA [None]
  - DRY MOUTH [None]
  - HYPOPHAGIA [None]
